FAERS Safety Report 5339137-1 (Version None)
Quarter: 2007Q2

REPORT INFORMATION
  Report Type: 
  Country: None (occurrence: None)
  Receive Date: 20070524
  Receipt Date: 20070509
  Transmission Date: 20071010
  Serious: Yes (Other)
  Sender: FDA-Public Use
  Company Number: 2007BM000051

PATIENT
  Age: 32 Year
  Sex: Male

DRUGS (2)
  1. PREDNISOLONE [Suspect]
     Indication: INTERSTITIAL LUNG DISEASE
     Dosage: 40 MG; 10 MG : QD
  2. ORAPRED [Suspect]

REACTIONS (8)
  - ASTHENIA [None]
  - EXTENSOR PLANTAR RESPONSE [None]
  - GAIT SPASTIC [None]
  - HYPERREFLEXIA [None]
  - HYPERTONIA [None]
  - MYELOPATHY [None]
  - PARAPARESIS [None]
  - SPINAL CORD COMPRESSION [None]
